FAERS Safety Report 6606978-X (Version None)
Quarter: 2010Q1

REPORT INFORMATION
  Report Type: 
  Country: None (occurrence: None)
  Receive Date: 20100226
  Receipt Date: 20090226
  Transmission Date: 20100710
  Serious: Yes (Other)
  Sender: FDA-Public Use
  Company Number: US-ALLERGAN-0902641US

PATIENT
  Sex: Female

DRUGS (1)
  1. BOTOX [Suspect]
     Indication: HEADACHE
     Dosage: 120 UNITS, SINGLE
     Route: 030
     Dates: start: 20081110, end: 20081110

REACTIONS (4)
  - DYSTONIA [None]
  - MUSCLE TIGHTNESS [None]
  - TORTICOLLIS [None]
  - TREMOR [None]
